FAERS Safety Report 10475910 (Version 1)
Quarter: 2014Q3

REPORT INFORMATION
  Report Type: Spontaneous
  Country: US (occurrence: US)
  Receive Date: 20140925
  Receipt Date: 20140925
  Transmission Date: 20150326
  Serious: No
  Sender: FDA-Public Use
  Company Number: US-GLAXOSMITHKLINE-A1071550A

PATIENT
  Age: 92 Year
  Sex: Male

DRUGS (19)
  1. COQ10 [Concomitant]
     Active Substance: UBIDECARENONE
  2. CEFUROXIME AXETIL. [Suspect]
     Active Substance: CEFUROXIME AXETIL
     Indication: PNEUMONIA
     Dosage: 500MG TWICE PER DAY
     Route: 048
     Dates: start: 20140327, end: 20140403
  3. AMOXICILLIN. [Suspect]
     Active Substance: AMOXICILLIN
     Indication: CELLULITIS
     Dosage: 1TAB TWICE PER DAY
     Route: 048
     Dates: start: 20140215, end: 20140228
  4. LUCENTIS [Concomitant]
     Active Substance: RANIBIZUMAB
  5. ASPIRIN. [Concomitant]
     Active Substance: ASPIRIN
  6. PREVACID [Concomitant]
     Active Substance: LANSOPRAZOLE
  7. SELENIUM [Concomitant]
     Active Substance: SELENIUM
  8. VITAMIN D [Concomitant]
     Active Substance: CHOLECALCIFEROL
  9. VITAMIN C [Concomitant]
     Active Substance: ASCORBIC ACID
  10. PRESERVISION [Concomitant]
  11. XALATAN [Concomitant]
     Active Substance: LATANOPROST
  12. SIMBRINZA [Concomitant]
     Active Substance: BRIMONIDINE TARTRATE\BRINZOLAMIDE
  13. FISH OIL [Concomitant]
     Active Substance: FISH OIL
  14. PROSTATE SUPPLEMENT [Concomitant]
  15. CENTRUM SILVER [Concomitant]
     Active Substance: VITAMINS
  16. MAGNESIUM [Concomitant]
     Active Substance: MAGNESIUM
  17. NORVASC [Concomitant]
     Active Substance: AMLODIPINE BESYLATE
  18. FIBERCON [Concomitant]
     Active Substance: CALCIUM POLYCARBOPHIL
  19. GRAPE SEED [Concomitant]

REACTIONS (7)
  - Faeces pale [Unknown]
  - Blood bilirubin increased [Not Recovered/Not Resolved]
  - Liver disorder [Unknown]
  - Pruritus [Unknown]
  - Jaundice [Unknown]
  - Decreased appetite [Unknown]
  - Chromaturia [Unknown]

NARRATIVE: CASE EVENT DATE: 20140424
